FAERS Safety Report 8014843-9 (Version None)
Quarter: 2011Q4

REPORT INFORMATION
  Report Type: 
  Country: None (occurrence: None)
  Receive Date: 20111229
  Receipt Date: 20111221
  Transmission Date: 20120403
  Serious: Yes (Other)
  Sender: FDA-Public Use
  Company Number: ZA-ABBOTT-11P-143-0885919-03

PATIENT
  Age: 13 Year
  Sex: Male
  Weight: 39.7 kg

DRUGS (5)
  1. LAMIVUDINE (EPIVIR HBV) [Concomitant]
     Indication: HIV INFECTION
     Route: 048
     Dates: start: 20060413, end: 20100811
  2. RITONAVIR [Suspect]
     Indication: HIV INFECTION
     Route: 048
     Dates: start: 20060413, end: 20100811
  3. D4T [Concomitant]
     Indication: HIV INFECTION
     Route: 048
     Dates: start: 20060413, end: 20101108
  4. MULTI-VITAMIN [Concomitant]
     Indication: PRODUCT USED FOR UNKNOWN INDICATION
     Dates: start: 20050606
  5. BMS 232632 [Concomitant]
     Indication: HIV INFECTION
     Route: 048
     Dates: start: 20060413, end: 20100811

REACTIONS (2)
  - BLOOD BILIRUBIN INCREASED [None]
  - BLOOD BILIRUBIN UNCONJUGATED INCREASED [None]
